FAERS Safety Report 17399503 (Version 4)
Quarter: 2020Q1

REPORT INFORMATION
  Report Type: Spontaneous
  Country: US (occurrence: US)
  Receive Date: 20200211
  Receipt Date: 20200316
  Transmission Date: 20200409
  Serious: No
  Sender: FDA-Public Use
  Company Number: US-BIOGEN-2020BI00836849

PATIENT
  Age: 69 Year
  Sex: Female

DRUGS (5)
  1. AVONEX [Suspect]
     Active Substance: INTERFERON BETA-1A
     Indication: MULTIPLE SCLEROSIS
     Route: 030
     Dates: start: 20000223
  2. AVONEX [Suspect]
     Active Substance: INTERFERON BETA-1A
  3. AVONEX [Suspect]
     Active Substance: INTERFERON BETA-1A
  4. AVONEX [Suspect]
     Active Substance: INTERFERON BETA-1A
  5. TYLENOL [Concomitant]
     Active Substance: ACETAMINOPHEN
     Route: 065

REACTIONS (7)
  - Peripheral swelling [Not Recovered/Not Resolved]
  - Injury associated with device [Recovered/Resolved with Sequelae]
  - Contusion [Recovered/Resolved]
  - Skin discolouration [Recovered/Resolved]
  - Product dose omission [Not Recovered/Not Resolved]
  - Needle issue [Recovered/Resolved]
  - Puncture site haemorrhage [Unknown]

NARRATIVE: CASE EVENT DATE: 20200204
